FAERS Safety Report 25449462 (Version 1)
Quarter: 2025Q2

REPORT INFORMATION
  Report Type: Spontaneous
  Country: US (occurrence: US)
  Receive Date: 20250618
  Receipt Date: 20250618
  Transmission Date: 20250717
  Serious: Yes (Other)
  Sender: COOPERSURGICAL
  Company Number: US-COOPERSURGICAL, INC.-2025CPS004914

PATIENT
  Age: 32 Year
  Sex: Female
  Weight: 65.76 kg

DRUGS (1)
  1. PARAGARD T 380A [Suspect]
     Active Substance: COPPER
     Indication: Contraception
     Route: 015
     Dates: start: 20110901

REACTIONS (9)
  - Uterine leiomyoma [Recovered/Resolved]
  - Device breakage [Unknown]
  - Foreign body in urogenital tract [Unknown]
  - Complication of device removal [Unknown]
  - Complication associated with device [Recovered/Resolved]
  - Anxiety [Unknown]
  - Heavy menstrual bleeding [Recovered/Resolved]
  - Abdominal pain [Unknown]
  - Dysmenorrhoea [Recovered/Resolved]

NARRATIVE: CASE EVENT DATE: 20200923
